FAERS Safety Report 7022934-4 (Version None)
Quarter: 2010Q3

REPORT INFORMATION
  Report Type: 
  Country: None (occurrence: None)
  Receive Date: 20100930
  Receipt Date: 20100929
  Transmission Date: 20110219
  Serious: Yes (Hospitalization)
  Sender: FDA-Public Use
  Company Number: FI-WYE-H17819410

PATIENT
  Age: 72 Year
  Sex: Female

DRUGS (2)
  1. PIPERACILLIN AND TAZOBACTAM [Suspect]
     Indication: EMPHYSEMATOUS CHOLECYSTITIS
     Dosage: UNKNOWN
     Route: 065
  2. PIPERACILLIN AND TAZOBACTAM [Suspect]
     Indication: BACTERIAL INFECTION

REACTIONS (5)
  - HEPATIC FAILURE [None]
  - LUNG DISORDER [None]
  - MULTI-ORGAN DISORDER [None]
  - SEPTIC SHOCK [None]
  - THROMBOCYTOPENIA [None]
